FAERS Safety Report 10162413 (Version 1)
Quarter: 2014Q2

REPORT INFORMATION
  Report Type: Spontaneous
  Country: US (occurrence: US)
  Receive Date: 20140509
  Receipt Date: 20140509
  Transmission Date: 20141212
  Serious: No
  Sender: FDA-Public Use
  Company Number: US-GLAXOSMITHKLINE-A1064417A

PATIENT
  Sex: Female

DRUGS (2)
  1. MUPIROCIN [Suspect]
     Indication: ERYTHEMA
     Route: 061
  2. ABREVA [Concomitant]

REACTIONS (2)
  - Lip swelling [Unknown]
  - Erythema [Unknown]
